FAERS Safety Report 15293181 (Version 2)
Quarter: 2018Q4

REPORT INFORMATION
  Report Type: Report from Study
  Country: CA (occurrence: CA)
  Receive Date: 20180820
  Receipt Date: 20180822
  Transmission Date: 20190204
  Serious: Yes (Hospitalization)
  Sender: FDA-Public Use
  Company Number: CA-SUN PHARMACEUTICAL INDUSTRIES LTD-2018US-179804

PATIENT
  Sex: Male
  Weight: 160 kg

DRUGS (2)
  1. REGULAR BENYLIN [Concomitant]
     Indication: NASOPHARYNGITIS
     Dosage: 15 ML, PRN
     Route: 048
     Dates: start: 20180312
  2. MK-3222 INJECTION [Suspect]
     Active Substance: TILDRAKIZUMAB
     Indication: PSORIASIS
     Dosage: UNK
     Route: 058
     Dates: start: 20180606

REACTIONS (1)
  - Cellulitis of male external genital organ [Recovered/Resolved]

NARRATIVE: CASE EVENT DATE: 20180621
